FAERS Safety Report 10417602 (Version 1)
Quarter: 2014Q2

REPORT INFORMATION
  Report Type: Spontaneous
  Country: US (occurrence: None)
  Receive Date: 20140609
  Receipt Date: 20140609
  Transmission Date: 20141212
  Serious: No
  Sender: FDA-Public Use
  Company Number: 2014TUS002168

PATIENT
  Age: 64 Year
  Sex: Male
  Weight: 103.9 kg

DRUGS (2)
  1. BRINTELLIX [Suspect]
     Indication: MAJOR DEPRESSION
     Route: 048
     Dates: start: 20140213, end: 20140313
  2. BRINTELLIX [Suspect]
     Indication: DEPRESSION
     Route: 048
     Dates: start: 20140213, end: 20140313

REACTIONS (3)
  - Memory impairment [None]
  - Malaise [None]
  - Insomnia [None]
